FAERS Safety Report 25904190 (Version 2)
Quarter: 2025Q4

REPORT INFORMATION
  Report Type: Spontaneous
  Country: IN (occurrence: EU)
  Receive Date: 20251010
  Receipt Date: 20251123
  Transmission Date: 20260117
  Serious: Yes (Other)
  Sender: AUROBINDO
  Company Number: EU-SA-2025SA283626

PATIENT
  Age: 61 Year
  Sex: Male

DRUGS (3)
  1. SEVELAMER CARBONATE [Suspect]
     Active Substance: SEVELAMER CARBONATE
     Indication: Hyperphosphataemia
     Dosage: 1200 MILLIGRAM, ONCE A DAY (ADMINISTERED IN THREE DIVIDED DOSES)
     Route: 065
  2. AMLODIPINE [Concomitant]
     Active Substance: AMLODIPINE BESYLATE
     Indication: Hypertension
     Dosage: UNK
     Route: 065
  3. METOPROLOL [Concomitant]
     Active Substance: METOPROLOL
     Indication: Hypertension
     Dosage: UNK
     Route: 065

REACTIONS (16)
  - Enteritis [Unknown]
  - Vomiting [Unknown]
  - Abdominal pain [Unknown]
  - Abdominal distension [Unknown]
  - Abdominal tenderness [Unknown]
  - Gastrointestinal sounds abnormal [Unknown]
  - Intestinal dilatation [Unknown]
  - Inflammation [Unknown]
  - Intestinal obstruction [Unknown]
  - Small intestine gangrene [Unknown]
  - Intestinal ulcer [Unknown]
  - Gastrointestinal necrosis [Unknown]
  - Skin exfoliation [Unknown]
  - Cellulitis [Unknown]
  - Abdominal adhesions [Unknown]
  - Crystal deposit intestine [Unknown]
